FAERS Safety Report 14325261 (Version 1)
Quarter: 2017Q4

REPORT INFORMATION
  Report Type: Spontaneous
  Country: US (occurrence: US)
  Receive Date: 20171224
  Receipt Date: 20171224
  Transmission Date: 20180321
  Serious: Yes (Life-Threatening, Disabling)
  Sender: FDA-Public Use
  Company Number: None

PATIENT
  Age: 65 Year
  Sex: Female
  Weight: 67.5 kg

DRUGS (25)
  1. OXYCOTIN ER [Concomitant]
  2. OXYCODONE [Concomitant]
     Active Substance: OXYCODONE
  3. SERTRLINE [Concomitant]
  4. SINGULAIR [Concomitant]
     Active Substance: MONTELUKAST SODIUM
  5. XANAX [Concomitant]
     Active Substance: ALPRAZOLAM
  6. FLAXSEED [Concomitant]
     Active Substance: FLAX SEED
  7. VITAMIN B12 [Concomitant]
     Active Substance: CYANOCOBALAMIN
  8. ATENALOL [Concomitant]
  9. ENBREL [Concomitant]
     Active Substance: ETANERCEPT
  10. CRESTOR [Concomitant]
     Active Substance: ROSUVASTATIN CALCIUM
  11. MOBIC [Concomitant]
     Active Substance: MELOXICAM
  12. FLEXRIL [Concomitant]
  13. VOLTERAN GEL [Concomitant]
  14. VITAMIN A [Concomitant]
     Active Substance: VITAMIN A
  15. CALCIUM [Concomitant]
     Active Substance: CALCIUM
  16. FISH OIL [Concomitant]
     Active Substance: FISH OIL
  17. LIOTHYRONINE [Concomitant]
     Active Substance: LIOTHYRONINE
  18. ZONEGRAN [Suspect]
     Active Substance: ZONISAMIDE
     Indication: EPILEPSY
     Dosage: ORAL; INCREASING DOSAGE?
     Route: 048
  19. ESTRADIOL. [Concomitant]
     Active Substance: ESTRADIOL
  20. SYNTHROID [Concomitant]
     Active Substance: LEVOTHYROXINE SODIUM
  21. VITAMIN D [Concomitant]
     Active Substance: CHOLECALCIFEROL
  22. B6 [Concomitant]
     Active Substance: PYRIDOXINE HYDROCHLORIDE
  23. VITAMIN E [Concomitant]
     Active Substance: .ALPHA.-TOCOPHEROL
  24. TESTOSTERONE CREAM [Concomitant]
     Active Substance: TESTOSTERONE
  25. MULTI-VITAMIN [Concomitant]
     Active Substance: .ALPHA.-TOCOPHEROL ACETATE, DL-\ASCORBIC ACID\CYANOCOBALAMIN\FLUORIDE ION\FOLIC ACID\NIACIN\PYRIDOXINE\RIBOFLAVIN\THIAMINE\VITAMIN A\VITAMIN D

REACTIONS (11)
  - Aphasia [None]
  - Arthralgia [None]
  - Musculoskeletal chest pain [None]
  - Memory impairment [None]
  - Gait inability [None]
  - Fatigue [None]
  - Loss of personal independence in daily activities [None]
  - Myalgia [None]
  - Muscle spasms [None]
  - Rheumatoid arthritis [None]
  - Osteoarthritis [None]

NARRATIVE: CASE EVENT DATE: 20020202
